FAERS Safety Report 23975773 (Version 1)
Quarter: 2024Q2

REPORT INFORMATION
  Report Type: Spontaneous
  Country: US (occurrence: US)
  Receive Date: 20240614
  Receipt Date: 20240614
  Transmission Date: 20240716
  Serious: No
  Sender: FDA-Public Use
  Company Number: US-SA-SAC20240610000923

PATIENT
  Sex: Female

DRUGS (1)
  1. DUPIXENT [Suspect]
     Active Substance: DUPILUMAB
     Indication: Urticaria
     Dosage: 300 MG, QOW
     Route: 058

REACTIONS (6)
  - Paraesthesia [Unknown]
  - Pruritus [Unknown]
  - Injection site pain [Unknown]
  - Stress [Unknown]
  - Urticaria [Unknown]
  - Product use in unapproved indication [Unknown]
